FAERS Safety Report 17185440 (Version 1)
Quarter: 2019Q4

REPORT INFORMATION
  Report Type: Spontaneous
  Country: US (occurrence: US)
  Receive Date: 20191220
  Receipt Date: 20191220
  Transmission Date: 20200122
  Serious: No
  Sender: FDA-Public Use
  Company Number: US-MALLINCKRODT-T201902142

PATIENT
  Age: 62 Year
  Sex: Female
  Weight: 42 kg

DRUGS (2)
  1. FENTANYL TRANSDERMAL SYSTEM [Suspect]
     Active Substance: FENTANYL
     Indication: PAIN
     Dosage: 12.5 ?G, UNK
     Route: 062
     Dates: start: 2018
  2. FENTANYL TRANSDERMAL SYSTEM [Suspect]
     Active Substance: FENTANYL
     Indication: PAIN
     Dosage: 25 ?G, EVERY 3 DAYS
     Route: 062
     Dates: start: 2019

REACTIONS (6)
  - Abdominal discomfort [Unknown]
  - Insomnia [Unknown]
  - Drug ineffective [Unknown]
  - Feeling abnormal [Unknown]
  - Anxiety [Unknown]
  - Psychomotor hyperactivity [Unknown]
